FAERS Safety Report 13098071 (Version 1)
Quarter: 2017Q1

REPORT INFORMATION
  Report Type: Spontaneous
  Country: US (occurrence: US)
  Receive Date: 20170109
  Receipt Date: 20170109
  Transmission Date: 20170428
  Serious: Yes (Other)
  Sender: FDA-Public Use
  Company Number: US-MEDA-2017010020

PATIENT
  Age: 41 Year
  Sex: Female
  Weight: 89 kg

DRUGS (1)
  1. DEMADEX [Suspect]
     Active Substance: TORSEMIDE
     Indication: HYPERTENSION
     Dates: start: 1995, end: 1995

REACTIONS (4)
  - Anaphylactic shock [Recovered/Resolved]
  - Heart rate increased [Recovered/Resolved]
  - Dyspnoea [Recovered/Resolved]
  - Blood pressure decreased [Recovered/Resolved]

NARRATIVE: CASE EVENT DATE: 1995
